FAERS Safety Report 11736668 (Version 2)
Quarter: 2016Q2

REPORT INFORMATION
  Report Type: Spontaneous
  Country: US (occurrence: US)
  Receive Date: 20151113
  Receipt Date: 20160502
  Transmission Date: 20160815
  Serious: No
  Sender: FDA-Public Use
  Company Number: US-JNJFOC-20150910705

PATIENT
  Age: 84 Year
  Sex: Male
  Weight: 90.72 kg

DRUGS (1)
  1. LEVAQUIN [Suspect]
     Active Substance: LEVOFLOXACIN
     Indication: CYSTITIS
     Route: 065

REACTIONS (6)
  - Memory impairment [Unknown]
  - Pelvic pain [Unknown]
  - Product use issue [Unknown]
  - Tendon disorder [Unknown]
  - Peripheral motor neuropathy [Unknown]
  - Gait disturbance [Unknown]
